FAERS Safety Report 11155496 (Version 1)
Quarter: 2015Q2

REPORT INFORMATION
  Report Type: Spontaneous
  Country: US (occurrence: None)
  Receive Date: 20150601
  Receipt Date: 20150601
  Transmission Date: 20150821
  Serious: Yes (Other)
  Sender: FDA-Public Use
  Company Number: None

PATIENT
  Age: 65 Year
  Sex: Female
  Weight: 83.01 kg

DRUGS (23)
  1. GABAPENTIN. [Suspect]
     Active Substance: GABAPENTIN
     Indication: BACK PAIN
     Dosage: 2 CAPSULES
     Route: 048
     Dates: start: 20150530
  2. PRAVASTATIN [Concomitant]
     Active Substance: PRAVASTATIN\PRAVASTATIN SODIUM
  3. GABAPENTIN. [Concomitant]
     Active Substance: GABAPENTIN
  4. CRANBERRY PILL [Concomitant]
  5. MVI [Concomitant]
     Active Substance: VITAMINS
  6. RANITIDINE [Concomitant]
     Active Substance: RANITIDINE\RANITIDINE HYDROCHLORIDE
  7. IRON [Concomitant]
     Active Substance: IRON
  8. PROVENTIL INHALERJANUVIA [Concomitant]
  9. NEXIUM [Concomitant]
     Active Substance: ESOMEPRAZOLE MAGNESIUM
  10. METFORMIN [Concomitant]
     Active Substance: METFORMIN HYDROCHLORIDE
  11. COQ10 [Concomitant]
     Active Substance: UBIDECARENONE
  12. LEVOTHYROXIN [Concomitant]
     Active Substance: LEVOTHYROXINE
  13. LISINOPRIL. [Concomitant]
     Active Substance: LISINOPRIL
  14. FISH OIL [Concomitant]
     Active Substance: FISH OIL
  15. CARAFATE LIQUID [Concomitant]
  16. GLIMEPERIDE [Concomitant]
     Active Substance: GLIMEPIRIDE
  17. SALINE NASAL SPRAY [Concomitant]
     Active Substance: SODIUM CHLORIDE
  18. ASA [Concomitant]
     Active Substance: ASPIRIN
  19. SYSTANE EYEDROPS [Concomitant]
     Active Substance: POLYETHYLENE GLYCOL 400\PROPYLENE GLYCOL
  20. GABAPENTIN. [Suspect]
     Active Substance: GABAPENTIN
     Indication: SPINAL COLUMN STENOSIS
     Dosage: 2 CAPSULES
     Route: 048
     Dates: start: 20150530
  21. PLAQUENIL [Concomitant]
     Active Substance: HYDROXYCHLOROQUINE SULFATE
  22. FLONASE [Concomitant]
     Active Substance: FLUTICASONE PROPIONATE
  23. VITAMIN D3 [Concomitant]
     Active Substance: CHOLECALCIFEROL

REACTIONS (5)
  - Product substitution issue [None]
  - Back pain [None]
  - Disease recurrence [None]
  - Fatigue [None]
  - Drug effect decreased [None]

NARRATIVE: CASE EVENT DATE: 20150530
